FAERS Safety Report 8533862-7 (Version None)
Quarter: 2012Q3

REPORT INFORMATION
  Report Type: 
  Country: None (occurrence: None)
  Receive Date: 20120724
  Receipt Date: 20120717
  Transmission Date: 20120928
  Serious: Yes (Death, Life-Threatening, Hospitalization)
  Sender: FDA-Public Use
  Company Number: CN-ROCHE-1055358

PATIENT
  Sex: Female
  Weight: 54 kg

DRUGS (3)
  1. PACLITAXEL [Suspect]
     Indication: NON-SMALL CELL LUNG CANCER
     Dosage: MOST RECENT DOSE PRIOR TO EVENT: 21/MAR/2012, 265 MG
     Route: 042
     Dates: start: 20120105
  2. CARBOPLATIN [Suspect]
     Indication: NON-SMALL CELL LUNG CANCER
     Dosage: MOST RECENT DOSE PRIOR TO EVENT: 21/MAR/2012, 739 MG
     Route: 042
     Dates: start: 20120105
  3. AVASTIN [Suspect]
     Indication: NON-SMALL CELL LUNG CANCER
     Dosage: MOST RECENT DOSE PRIOR TO THE EVENT: 21/MAR/2012
     Route: 042
     Dates: start: 20120105

REACTIONS (2)
  - DEATH [None]
  - CARDIAC FAILURE [None]
